FAERS Safety Report 9416674 (Version 1)
Quarter: 2013Q3

REPORT INFORMATION
  Report Type: Report from Study
  Country: US (occurrence: US)
  Receive Date: 20130724
  Receipt Date: 20130724
  Transmission Date: 20140515
  Serious: Yes (Hospitalization, Disabling, Other)
  Sender: FDA-Public Use
  Company Number: US-ASTELLAS-2013EU006327

PATIENT
  Age: 55 Year
  Sex: Male
  Weight: 107.8 kg

DRUGS (49)
  1. BLINDED FIDAXOMICIN [Suspect]
     Indication: PROPHYLAXIS
     Dosage: 1 DF, UID/QD
     Route: 048
     Dates: start: 20130322, end: 20130325
  2. MICAFUNGIN [Suspect]
     Indication: ANTIFUNGAL PROPHYLAXIS
     Dosage: 100-150-MG-Q24HR DAILY
     Route: 042
     Dates: start: 20130320
  3. TACROLIMUS SYSTEMIC [Suspect]
     Indication: PROPHYLAXIS AGAINST TRANSPLANT REJECTION
     Dosage: 0.5-1-MG-QPM
     Route: 048
     Dates: start: 20130408, end: 20130525
  4. CALCIUM +VIT D [Concomitant]
     Indication: SUPPLEMENTATION THERAPY
     Dosage: 1-TABLET-BID
     Route: 048
     Dates: start: 20130426, end: 20130607
  5. CIPROFLOXACIN [Concomitant]
     Indication: BK VIRUS INFECTION
     Dosage: 500-MG-Q12H
     Route: 048
     Dates: start: 20130428
  6. LEVETIRACETAM [Concomitant]
     Indication: PROPHYLAXIS
     Dosage: 500 MG, BID
     Route: 048
     Dates: start: 20130320
  7. DOCUSATE SODIUM [Concomitant]
     Indication: CONSTIPATION PROPHYLAXIS
     Dosage: 50 MG, BID
     Route: 048
     Dates: start: 20130429, end: 20130607
  8. ERGOCALCIFEROL [Concomitant]
     Indication: VITAMIN D DEFICIENCY
     Dosage: 50000-U-WEEKLY
     Route: 048
     Dates: start: 20130429
  9. FOSCARNET [Concomitant]
     Indication: CYTOMEGALOVIRUS VIRAEMIA
     Dosage: 5856-MG-Q8H
     Route: 042
     Dates: start: 20130424, end: 20130506
  10. GANCICLOVIR [Concomitant]
     Indication: CYTOMEGALOVIRUS VIRAEMIA
     Dosage: 500-MG-Q12H
     Route: 042
     Dates: start: 20130506, end: 20130607
  11. HYDROMORPHONE [Concomitant]
     Indication: PAIN
     Dosage: 0.1-0.4-MG-PRN
     Route: 042
     Dates: start: 20130501, end: 20130607
  12. H-INSULIN [Concomitant]
     Indication: TYPE 2 DIABETES MELLITUS
     Dosage: 40-U-BEFORE BREAKFAST
     Route: 058
     Dates: start: 20130425, end: 20130428
  13. INSULIN-HM R [Concomitant]
     Indication: TYPE 2 DIABETES MELLITUS
     Dosage: 3-15-U-PRN
     Route: 058
     Dates: start: 20130424
  14. INSULIN-HM R [Concomitant]
     Dosage: 1-35-U-PRN
     Route: 058
     Dates: start: 20130320
  15. LANSOPRAZOLE [Concomitant]
     Indication: PROPHYLAXIS
     Dosage: 30 MG, SINGLE
     Route: 048
     Dates: start: 20130424, end: 20130501
  16. LANSOPRAZOLE [Concomitant]
     Dosage: 30-MG-BID
     Route: 048
     Dates: start: 20130502, end: 20130607
  17. MAGNESIUM OXIDE [Concomitant]
     Indication: ELECTROLYTE SUBSTITUTION THERAPY
     Dosage: 400 MG, TID
     Route: 048
     Dates: start: 20130428, end: 20130429
  18. MAGNESIUM SULPHATE                 /01097001/ [Concomitant]
     Indication: ELECTROLYTE SUBSTITUTION THERAPY
     Dosage: 1-4-G-PRN
     Route: 042
     Dates: start: 20130425, end: 20130606
  19. METHYLPREDNISOLONE [Concomitant]
     Indication: GRAFT VERSUS HOST DISEASE
     Dosage: 10-25-MG-BID
     Route: 042
     Dates: start: 20130507, end: 20130530
  20. METOPROLOL [Concomitant]
     Indication: HYPERTENSION
     Dosage: 12.5-MG-Q12H
     Route: 048
     Dates: start: 20130425, end: 20130515
  21. METOPROLOL [Concomitant]
     Dosage: 12.5-MG-Q12H
     Route: 048
     Dates: start: 20130323, end: 20130515
  22. URSODIOL [Concomitant]
     Indication: PROPHYLAXIS
     Dosage: 300 MG, BID
     Route: 048
     Dates: start: 20130320
  23. PHENAZOPYRIDINE [Concomitant]
     Indication: BLADDER IRRITATION
     Dosage: 100 MG, TID
     Route: 048
     Dates: start: 20130429
  24. NEUTRA-PHOS                        /00555301/ [Concomitant]
     Indication: HYPOPHOSPHATAEMIA
     Dosage: 1.25-G-TID PRN HYPOPHOSPHATEMIA
     Route: 048
     Dates: start: 20130427, end: 20130524
  25. K-PHOS NEUTRAL [Concomitant]
     Indication: HYPOPHOSPHATAEMIA
     Dosage: 1-TABLET-TID
     Route: 048
     Dates: start: 20130503, end: 20130504
  26. PIPERACILLIN/TAZOBACTAM [Concomitant]
     Indication: URINARY TRACT INFECTION
     Dosage: 3.375-G-Q6H
     Route: 042
     Dates: start: 20130430, end: 20130501
  27. POTASSIUM PHOSPHATE [Concomitant]
     Indication: HYPOPHOSPHATAEMIA
     Dosage: 7.8184-23.5-MMOL-ONCE
     Route: 042
     Dates: start: 20130504, end: 20130504
  28. PREDNISONE [Concomitant]
     Indication: PROPHYLAXIS AGAINST GRAFT VERSUS HOST DISEASE
     Dosage: 25-65-MG-AM
     Route: 048
     Dates: start: 20130424, end: 20130507
  29. PREDNISONE [Concomitant]
     Indication: GRAFT VERSUS HOST DISEASE
     Dosage: 90-MG-Q12H
     Route: 048
     Dates: start: 20130419
  30. VORICONAZOLE [Concomitant]
     Indication: ANTIFUNGAL PROPHYLAXIS
     Dosage: 400-MG-Q12H
     Route: 048
     Dates: start: 20130320
  31. SULFAMETHOXAZOLE W/TRIMETHOPRIM [Concomitant]
     Indication: ANTIBIOTIC PROPHYLAXIS
     Dosage: 800-80-MG-MWF
     Route: 048
     Dates: start: 20130228
  32. TRIAMCINOLONE [Concomitant]
     Indication: GRAFT VERSUS HOST DISEASE IN SKIN
     Dosage: 0.1-%-2-3 TIMES DAILY
     Route: 061
     Dates: start: 20130502
  33. TRIAMCINOLONE [Concomitant]
     Indication: PRURITUS
     Dosage: 0.1-%-BID
     Route: 061
     Dates: start: 20130413, end: 20130424
  34. ACETAMINOPHEN [Concomitant]
     Indication: PREMEDICATION
     Dosage: 650 MG, PRN
     Route: 048
     Dates: start: 20130327, end: 20130607
  35. VANCOMYCIN [Concomitant]
     Indication: URINARY TRACT INFECTION
     Dosage: 1.25-1.5-G-Q24HR
     Route: 042
     Dates: start: 20130501, end: 20130503
  36. MAGNESIUM HYDROXIDE [Concomitant]
     Indication: CONSTIPATION
     Dosage: 30-ML-Q4H
     Route: 048
     Dates: start: 20130429, end: 20130429
  37. MORPHINE [Concomitant]
     Indication: PAIN
     Dosage: 2 MG, PRN
     Route: 042
     Dates: start: 20130428, end: 20130501
  38. OXYCODONE [Concomitant]
     Indication: PAIN
     Dosage: 5-10-MG-Q4H
     Route: 048
     Dates: start: 20130425, end: 20130607
  39. ONDANSETRON [Concomitant]
     Indication: NAUSEA
     Dosage: 4-MG-Q8H
     Route: 048
     Dates: start: 20130501, end: 20130501
  40. ONDANSETRON [Concomitant]
     Indication: VOMITING
  41. ZOLPIDEM [Concomitant]
     Indication: INSOMNIA
     Dosage: 5 MG, HS
     Route: 048
     Dates: start: 20130504, end: 20130507
  42. ZOLPIDEM [Concomitant]
     Dosage: 5-MG-QHS
     Route: 048
     Dates: start: 20130415
  43. LEVOFLOXACIN [Concomitant]
     Indication: PROPHYLAXIS
     Dosage: 500 MG, QD
     Route: 048
     Dates: start: 20130417, end: 20130428
  44. DEFEROXAMINE [Concomitant]
     Indication: SERUM FERRITIN INCREASED
     Dosage: 2000 MG, PRN
     Route: 042
     Dates: start: 20130320
  45. DEFEROXAMINE [Concomitant]
     Dosage: 1000, 2000-MG-PRN
     Route: 042
     Dates: start: 20130328
  46. BACTROBAN                          /00753901/ [Concomitant]
     Indication: PROPHYLAXIS
     Dosage: 1-APP-BID
     Route: 045
     Dates: start: 20130331
  47. DIPHENHYDRAMINE [Concomitant]
     Indication: PROPHYLAXIS
     Dosage: 25 MG, PRN
     Route: 048
     Dates: start: 20130320
  48. DIPHENHYDRAMINE [Concomitant]
     Indication: PREMEDICATION
  49. MAALOX                             /00082501/ [Concomitant]
     Indication: PROPHYLAXIS
     Dosage: 30 ML, BID
     Route: 048
     Dates: start: 20130501, end: 20130607

REACTIONS (1)
  - Graft versus host disease in skin [Not Recovered/Not Resolved]
